FAERS Safety Report 9846123 (Version 1)
Quarter: 2014Q1

REPORT INFORMATION
  Report Type: Spontaneous
  Country: US (occurrence: US)
  Receive Date: 20140127
  Receipt Date: 20140127
  Transmission Date: 20141002
  Serious: Yes (Disabling, Other)
  Sender: FDA-Public Use
  Company Number: US-ELI_LILLY_AND_COMPANY-US201401004389

PATIENT
  Sex: Female

DRUGS (6)
  1. HUMULIN NPH [Suspect]
     Indication: TYPE 2 DIABETES MELLITUS
     Dosage: UNK
     Route: 065
     Dates: start: 1998
  2. HUMULIN NPH [Suspect]
     Dosage: 80 U, BID WITH MEALS
     Route: 065
  3. INSULIN HUMAN [Suspect]
     Indication: TYPE 2 DIABETES MELLITUS
     Dosage: UNK
     Route: 065
     Dates: start: 1998
  4. INSULIN HUMAN [Suspect]
     Dosage: UNK
     Route: 065
  5. SINGULAR [Suspect]
     Indication: CHRONIC OBSTRUCTIVE PULMONARY DISEASE
     Dosage: UNK
     Route: 065
  6. SINGULAR [Suspect]
     Indication: ASTHMA

REACTIONS (13)
  - Atrial fibrillation [Unknown]
  - Tachycardia [Unknown]
  - Chronic obstructive pulmonary disease [Unknown]
  - Asthma [Unknown]
  - Bronchitis chronic [Unknown]
  - Neuropathy peripheral [Unknown]
  - Dyspnoea exertional [Unknown]
  - Sensory loss [Unknown]
  - Abortion spontaneous [Unknown]
  - Exposure during pregnancy [Recovered/Resolved]
  - Emotional distress [Unknown]
  - Blood glucose increased [Recovered/Resolved]
  - Drug ineffective [Unknown]
